FAERS Safety Report 15595971 (Version 2)
Quarter: 2025Q3

REPORT INFORMATION
  Report Type: Spontaneous
  Country: US (occurrence: US)
  Receive Date: 20181107
  Receipt Date: 20250718
  Transmission Date: 20251021
  Serious: Yes (Hospitalization, Other)
  Sender: AUROBINDO
  Company Number: US-AUROBINDO-AUR-APL-2018-053017

PATIENT
  Age: 58 Year
  Sex: Female

DRUGS (1)
  1. CEFUROXIME [Suspect]
     Active Substance: CEFUROXIME
     Indication: Upper respiratory tract infection
     Route: 048

REACTIONS (2)
  - Clostridium difficile colitis [Recovered/Resolved]
  - Arthritis reactive [Recovered/Resolved]
